FAERS Safety Report 24355550 (Version 1)
Quarter: 2024Q3

REPORT INFORMATION
  Report Type: Spontaneous
  Country: US (occurrence: US)
  Receive Date: 20240924
  Receipt Date: 20240924
  Transmission Date: 20241017
  Serious: Yes (Hospitalization)
  Sender: SPECGX
  Company Number: US-SPECGX-T202401901

PATIENT
  Age: 66 Year
  Sex: Female

DRUGS (5)
  1. OXYCODONE [Suspect]
     Active Substance: OXYCODONE
     Indication: Pain
     Dosage: 10 MILLIGRAM
     Route: 065
  2. MORPHINE [Suspect]
     Active Substance: MORPHINE
     Indication: Pain
     Dosage: 15 MILLIGRAM
     Route: 065
  3. NALOXONE [Suspect]
     Active Substance: NALOXONE
     Indication: Overdose
     Dosage: 4 MILLIGRAM
     Route: 045
  4. NALOXONE [Suspect]
     Active Substance: NALOXONE
     Dosage: 2 MILLIGRAM
     Route: 042
  5. NALOXONE [Suspect]
     Active Substance: NALOXONE
     Dosage: 2 MILLIGRAM
     Route: 042

REACTIONS (9)
  - Tachypnoea [Unknown]
  - Lethargy [Unknown]
  - Respiratory acidosis [Unknown]
  - Overdose [Unknown]
  - Encephalopathy [Unknown]
  - Pulmonary oedema [Recovering/Resolving]
  - Hypoxia [Unknown]
  - Drug withdrawal syndrome [Unknown]
  - Blood pressure decreased [Recovering/Resolving]
